FAERS Safety Report 10870351 (Version 3)
Quarter: 2015Q2

REPORT INFORMATION
  Report Type: Spontaneous
  Country: IE (occurrence: IE)
  Receive Date: 20150226
  Receipt Date: 20150514
  Transmission Date: 20150821
  Serious: Yes (Other)
  Sender: FDA-Public Use
  Company Number: IE-PFIZER INC-2015008052

PATIENT
  Age: 6 Decade
  Sex: Female

DRUGS (1)
  1. SUTENT [Suspect]
     Active Substance: SUNITINIB MALATE
     Indication: METASTATIC RENAL CELL CARCINOMA
     Dosage: 50 MG, CYCLIC (4 WEEKS ON/2 WEEKS OFF)

REACTIONS (6)
  - Pelvic infection [Unknown]
  - Metastatic renal cell carcinoma [Unknown]
  - Vaginal haemorrhage [Unknown]
  - Disease progression [Unknown]
  - Depressed mood [Unknown]
  - Tumour pain [Unknown]
